FAERS Safety Report 20552446 (Version 1)
Quarter: 2022Q1

REPORT INFORMATION
  Report Type: Spontaneous
  Country: US (occurrence: None)
  Receive Date: 20220303
  Receipt Date: 20220303
  Transmission Date: 20220423
  Serious: Yes (Hospitalization)
  Sender: FDA-Public Use
  Company Number: None

PATIENT
  Sex: Female

DRUGS (2)
  1. COPAXONE [Suspect]
     Active Substance: GLATIRAMER ACETATE
     Indication: Multiple sclerosis
     Dosage: OTHER FREQUENCY : QD MON, WED, FRI;??INJECT 40 MG UNDER THE SKIN (SUBCUTANEOUS INJECTION) EVERY MOND
     Route: 058
     Dates: start: 20210330
  2. COPAXONE [Suspect]
     Active Substance: GLATIRAMER ACETATE
     Dosage: OTHER FREQUENCY : QD MON, WED, FRI;?
     Route: 058

REACTIONS (2)
  - Hospitalisation [None]
  - Therapy interrupted [None]
